FAERS Safety Report 23771127 (Version 1)
Quarter: 2024Q2

REPORT INFORMATION
  Report Type: Spontaneous
  Country: CN (occurrence: CN)
  Receive Date: 20240423
  Receipt Date: 20240423
  Transmission Date: 20240715
  Serious: Yes (Hospitalization, Other)
  Sender: FDA-Public Use
  Company Number: CN-NOVOPROD-1206201

PATIENT
  Age: 85 Year
  Sex: Female
  Weight: 65 kg

DRUGS (1)
  1. NOVOLIN R [Suspect]
     Active Substance: INSULIN HUMAN
     Indication: Type 2 diabetes mellitus
     Dosage: 14-16 U IN THE MORNING AND 14-16 U IN THE EVENING

REACTIONS (4)
  - Cardiovascular disorder [Unknown]
  - Cerebral thrombosis [Unknown]
  - Thrombosis [Unknown]
  - Blood glucose abnormal [Unknown]
